FAERS Safety Report 6425554-5 (Version None)
Quarter: 2009Q4

REPORT INFORMATION
  Report Type: 
  Country: None (occurrence: None)
  Receive Date: 20091103
  Receipt Date: 20091026
  Transmission Date: 20100525
  Serious: No
  Sender: FDA-Public Use
  Company Number: US-B.I. PHARMACEUTICALS,INC./RIDGEFIELD-2009-BP-12540BP

PATIENT
  Age: 86 Year
  Sex: Male

DRUGS (2)
  1. FLOMAX [Suspect]
  2. AVODART [Concomitant]

REACTIONS (1)
  - DYSURIA [None]
